FAERS Safety Report 7728600-1 (Version None)
Quarter: 2011Q3

REPORT INFORMATION
  Report Type: 
  Country: None (occurrence: None)
  Receive Date: 20110831
  Receipt Date: 20110831
  Transmission Date: 20111222
  Serious: Yes (Hospitalization)
  Sender: FDA-Public Use
  Company Number: None

PATIENT
  Age: 84 Year
  Sex: Female
  Weight: 86 kg

DRUGS (13)
  1. LIBRIUM [Concomitant]
  2. FERROUS SULFAE [Concomitant]
  3. DILTIAZEM [Concomitant]
  4. FUROSEMIDE [Concomitant]
  5. POTASSIUM CHLORIDE [Concomitant]
  6. ASCORBIC ACID [Concomitant]
  7. ACETAMINOPHEN [Concomitant]
  8. PRADAXA [Suspect]
     Indication: ATRIAL FIBRILLATION
     Dosage: 150MG (1 TABLET) BID ORAL
     Route: 048
     Dates: start: 20110706, end: 20110814
  9. OMEPRAZOLE [Concomitant]
  10. VITAMIN B [Concomitant]
  11. ASPIRIN [Concomitant]
  12. TRIBENZOR [Concomitant]
  13. IBUPROFEN [Concomitant]

REACTIONS (9)
  - FALL [None]
  - DIZZINESS [None]
  - ENTEROCOLITIS INFECTIOUS [None]
  - ASTHENIA [None]
  - CONTUSION [None]
  - RENAL FAILURE ACUTE [None]
  - LACERATION [None]
  - DIARRHOEA HAEMORRHAGIC [None]
  - GASTROINTESTINAL HAEMORRHAGE [None]
